FAERS Safety Report 6837675-3 (Version None)
Quarter: 2010Q3

REPORT INFORMATION
  Report Type: 
  Country: None (occurrence: None)
  Receive Date: 20100713
  Receipt Date: 20070518
  Transmission Date: 20110219
  Serious: No
  Sender: FDA-Public Use
  Company Number: US-PFIZER INC-2007040933

PATIENT
  Sex: Female

DRUGS (2)
  1. CHANTIX [Suspect]
  2. PREMARIN [Interacting]

REACTIONS (3)
  - DRUG INTERACTION [None]
  - HOT FLUSH [None]
  - NIGHT SWEATS [None]
